FAERS Safety Report 9841302 (Version 1)
Quarter: 2013Q4

REPORT INFORMATION
  Report Type: Spontaneous
  Country: US (occurrence: None)
  Receive Date: 20131219
  Receipt Date: 20131219
  Transmission Date: 20140711
  Serious: Yes (Other)
  Sender: FDA-Public Use
  Company Number: 163-20785-12102756

PATIENT
  Age: 91 Year
  Sex: Female

DRUGS (2)
  1. THALOMID [Suspect]
     Dosage: 28 IN 28 D
     Route: 048
     Dates: start: 20120514
  2. BLOOD THINNER [Concomitant]

REACTIONS (3)
  - Drug dose omission [None]
  - Haematochezia [None]
  - Weight decreased [None]
